FAERS Safety Report 17149440 (Version 1)
Quarter: 2019Q4

REPORT INFORMATION
  Report Type: Report from Study
  Country: FR (occurrence: FR)
  Receive Date: 20191213
  Receipt Date: 20191213
  Transmission Date: 20200122
  Serious: Yes (Hospitalization)
  Sender: FDA-Public Use
  Company Number: FR-ACTELION-A-CH2019-192818

PATIENT
  Age: 47 Year
  Sex: Female
  Weight: 59 kg

DRUGS (10)
  1. UPTRAVI [Suspect]
     Active Substance: SELEXIPAG
     Dosage: 400 MCG, BID
     Route: 048
     Dates: start: 20190701
  2. UPTRAVI [Suspect]
     Active Substance: SELEXIPAG
     Dosage: 1600 MCG, BID
     Route: 048
     Dates: start: 20190827
  3. UPTRAVI [Suspect]
     Active Substance: SELEXIPAG
     Dosage: 1400 MCG, BID
     Route: 048
     Dates: start: 20190820
  4. TADALAFIL. [Concomitant]
     Active Substance: TADALAFIL
     Indication: PULMONARY ARTERIAL HYPERTENSION
  5. UPTRAVI [Suspect]
     Active Substance: SELEXIPAG
     Indication: PULMONARY ARTERIAL HYPERTENSION
     Dosage: 200 MCG, BID
     Route: 048
     Dates: start: 20190624
  6. UPTRAVI [Suspect]
     Active Substance: SELEXIPAG
     Dosage: 800 MCG, BID
     Route: 048
     Dates: start: 20190715
  7. AMBRISENTAN [Concomitant]
     Active Substance: AMBRISENTAN
     Indication: PULMONARY ARTERIAL HYPERTENSION
  8. UPTRAVI [Suspect]
     Active Substance: SELEXIPAG
     Dosage: 1000 MCG, BID
     Route: 048
     Dates: start: 20190722
  9. UPTRAVI [Suspect]
     Active Substance: SELEXIPAG
     Dosage: 600 MCG, BID
     Route: 048
     Dates: start: 20190708
  10. UPTRAVI [Suspect]
     Active Substance: SELEXIPAG
     Dosage: 1200 MCG, BID
     Route: 048
     Dates: start: 20190813

REACTIONS (17)
  - Incorrect dose administered [Unknown]
  - Fall [Recovering/Resolving]
  - Vomiting [Not Recovered/Not Resolved]
  - Fatigue [Not Recovered/Not Resolved]
  - Bronchitis [Recovered/Resolved]
  - Ligament sprain [Recovering/Resolving]
  - Drug titration error [Unknown]
  - Diarrhoea [Not Recovered/Not Resolved]
  - Oedema peripheral [Recovered/Resolved]
  - Transfusion [Unknown]
  - Headache [Recovered/Resolved]
  - Anaemia [Recovering/Resolving]
  - Nausea [Not Recovered/Not Resolved]
  - Dyspnoea [Not Recovered/Not Resolved]
  - Dry mouth [Not Recovered/Not Resolved]
  - Myalgia [Not Recovered/Not Resolved]
  - Nerve compression [Not Recovered/Not Resolved]

NARRATIVE: CASE EVENT DATE: 20190624
